FAERS Safety Report 9185210 (Version 1)
Quarter: 2012Q4

REPORT INFORMATION
  Report Type: 
  Country: US (occurrence: US)
  Receive Date: 20121031
  Receipt Date: 20121031
  Transmission Date: 20130627
  Serious: No
  Sender: FDA-Public Use
  Company Number: US-TEVA-367626USA

PATIENT
  Age: 21 None
  Sex: Female
  Weight: 56.75 kg

DRUGS (3)
  1. PLAN B ONE-STEP [Suspect]
     Indication: POST COITAL CONTRACEPTION
     Dosage: 1.5 Milligram Daily;
     Route: 048
     Dates: start: 20121022, end: 20121022
  2. ZYRTEC [Concomitant]
     Indication: HYPERSENSITIVITY
  3. LORYNA [Concomitant]
     Indication: CONTRACEPTION

REACTIONS (4)
  - Nausea [Not Recovered/Not Resolved]
  - Pelvic pain [Not Recovered/Not Resolved]
  - Menstruation irregular [Not Recovered/Not Resolved]
  - Headache [Recovered/Resolved]
